FAERS Safety Report 8304285-0 (Version None)
Quarter: 2012Q2

REPORT INFORMATION
  Report Type: 
  Country: None (occurrence: None)
  Receive Date: 20120423
  Receipt Date: 20120423
  Transmission Date: 20120825
  Serious: Yes (Other)
  Sender: FDA-Public Use
  Company Number: None

PATIENT
  Age: 72 Year
  Sex: Female
  Weight: 58.059 kg

DRUGS (1)
  1. IBANDRONATE SODIUM [Suspect]
     Indication: OSTEOPOROSIS
     Dosage: 1 TABLET
     Route: 049
     Dates: start: 20120418, end: 20120418

REACTIONS (5)
  - CHILLS [None]
  - NAUSEA [None]
  - DIARRHOEA [None]
  - TREMOR [None]
  - VOMITING [None]
